FAERS Safety Report 17009183 (Version 1)
Quarter: 2019Q4

REPORT INFORMATION
  Report Type: Spontaneous
  Country: GB (occurrence: GB)
  Receive Date: 20191108
  Receipt Date: 20191108
  Transmission Date: 20200122
  Serious: Yes (Other)
  Sender: FDA-Public Use
  Company Number: GB-009507513-1911GBR001141

PATIENT
  Age: 38 Year
  Sex: Female

DRUGS (2)
  1. ACCRETE D3 [Concomitant]
     Active Substance: CALCIUM CARBONATE\CHOLECALCIFEROL
     Dosage: UNK
  2. ZEPATIER [Suspect]
     Active Substance: ELBASVIR\GRAZOPREVIR
     Indication: HEPATITIS C
     Dosage: 50/100 MG
     Route: 048
     Dates: start: 20190716, end: 20191007

REACTIONS (1)
  - Gluten sensitivity [Not Recovered/Not Resolved]

NARRATIVE: CASE EVENT DATE: 20190718
